FAERS Safety Report 7299004-3 (Version None)
Quarter: 2011Q1

REPORT INFORMATION
  Report Type: 
  Country: None (occurrence: None)
  Receive Date: 20110208
  Receipt Date: 20110124
  Transmission Date: 20110831
  Serious: Yes (Other)
  Sender: FDA-Public Use
  Company Number: CH-GDP-11409900

PATIENT
  Age: 81 Year
  Sex: Male

DRUGS (1)
  1. METVIX (METHYL AMINOLEVULINATE HYDROCHLORIDE) 16 % [Suspect]
     Indication: ACTINIC KERATOSIS
     Dosage: (1 DF TOPICAL)
     Route: 061

REACTIONS (5)
  - SCAB [None]
  - HERPES SIMPLEX [None]
  - ERYTHEMA [None]
  - PAIN [None]
  - SKIN BURNING SENSATION [None]
